FAERS Safety Report 22092536 (Version 12)
Quarter: 2024Q3

REPORT INFORMATION
  Report Type: Report from Study
  Country: MX (occurrence: MX)
  Receive Date: 20230314
  Receipt Date: 20240809
  Transmission Date: 20241017
  Serious: Yes (Hospitalization, Other)
  Sender: NOVARTIS
  Company Number: MX-002147023-NVSC2023MX056355

PATIENT
  Age: 78 Year
  Sex: Female
  Weight: 58 kg

DRUGS (11)
  1. KISQALI [Suspect]
     Active Substance: RIBOCICLIB
     Indication: Breast cancer
     Dosage: 1 DOSAGE FORM, QD
     Route: 048
     Dates: start: 202012
  2. KISQALI [Suspect]
     Active Substance: RIBOCICLIB
     Indication: Metastases to bone
     Dosage: 200 MG, QD, FOR 3 WEEKS AND SUSPENDS 4TH
     Route: 048
  3. KISQALI [Suspect]
     Active Substance: RIBOCICLIB
     Dosage: UNK
     Route: 048
     Dates: start: 202112
  4. KISQALI [Suspect]
     Active Substance: RIBOCICLIB
     Dosage: UNK
     Route: 048
  5. KISQALI [Suspect]
     Active Substance: RIBOCICLIB
     Dosage: 1 DOSAGE FORM, QD
     Route: 048
  6. ANASTROZOLE [Concomitant]
     Active Substance: ANASTROZOLE
     Indication: Breast cancer
     Dosage: UNK
     Route: 065
  7. LETROZOLE [Concomitant]
     Active Substance: LETROZOLE
     Indication: Breast cancer
     Dosage: 2.5 MG (A DAY FOR 3 WEEKS AND SUSPENDS FOR 1 WEEK)
     Route: 065
     Dates: start: 202302
  8. MELATONIN [Concomitant]
     Active Substance: MELATONIN
     Indication: Insomnia
     Dosage: 10 MG, QD (AT NIGHT)
     Route: 048
     Dates: start: 202401, end: 202404
  9. NIFEDIPINE [Concomitant]
     Active Substance: NIFEDIPINE
     Indication: Cardiac disorder
     Dosage: 30 MG, QD (A DAY)
     Route: 048
  10. CLOPIDOGREL [Concomitant]
     Active Substance: CLOPIDOGREL BISULFATE
     Indication: Cardiac disorder
     Dosage: 75 MG, QD (A DAY)
     Route: 048
  11. ALIVOATO [Concomitant]
     Indication: Prophylaxis
     Dosage: 10 MG, QD (A DAY )
     Route: 065

REACTIONS (68)
  - Cardiac valve disease [Unknown]
  - Infection [Not Recovered/Not Resolved]
  - Nasopharyngitis [Unknown]
  - Decreased appetite [Unknown]
  - Constipation [Not Recovered/Not Resolved]
  - Fatigue [Not Recovered/Not Resolved]
  - Bone cancer [Unknown]
  - Second primary malignancy [Unknown]
  - Retinal detachment [Unknown]
  - Cerebrovascular disorder [Unknown]
  - Hypoacusis [Not Recovered/Not Resolved]
  - Asphyxia [Unknown]
  - Choking [Recovered/Resolved]
  - Cataract [Unknown]
  - Dry eye [Unknown]
  - Onychoclasis [Not Recovered/Not Resolved]
  - Fall [Not Recovered/Not Resolved]
  - Bone pain [Not Recovered/Not Resolved]
  - Arthralgia [Not Recovered/Not Resolved]
  - Gait inability [Unknown]
  - Memory impairment [Unknown]
  - Pain [Unknown]
  - Speech disorder [Unknown]
  - Tooth disorder [Not Recovered/Not Resolved]
  - Emotional distress [Unknown]
  - Abdominal discomfort [Unknown]
  - Increased appetite [Unknown]
  - Breast disorder [Unknown]
  - Anxiety [Recovered/Resolved]
  - Depression [Recovered/Resolved]
  - Feeling of despair [Unknown]
  - Dysstasia [Unknown]
  - Gait inability [Unknown]
  - Inflammation [Unknown]
  - Faeces discoloured [Recovered/Resolved]
  - Tachycardia [Unknown]
  - Wound [Unknown]
  - Malaise [Unknown]
  - Irritability [Unknown]
  - Vaginal infection [Not Recovered/Not Resolved]
  - Dizziness postural [Recovered/Resolved]
  - Headache [Unknown]
  - Dyspnoea [Recovered/Resolved]
  - Urinary tract infection [Recovered/Resolved]
  - Visual impairment [Not Recovered/Not Resolved]
  - Back pain [Not Recovered/Not Resolved]
  - Eye pain [Unknown]
  - Lacrimation increased [Unknown]
  - Eye irritation [Not Recovered/Not Resolved]
  - Abdominal fat apron [Not Recovered/Not Resolved]
  - Vision blurred [Not Recovered/Not Resolved]
  - Laboratory test abnormal [Not Recovered/Not Resolved]
  - Asthenia [Not Recovered/Not Resolved]
  - Thirst decreased [Recovering/Resolving]
  - Muscle spasms [Not Recovered/Not Resolved]
  - Mental fatigue [Not Recovered/Not Resolved]
  - Spinal pain [Not Recovered/Not Resolved]
  - Depression [Unknown]
  - Swelling [Unknown]
  - Gastritis [Unknown]
  - Abdominal pain lower [Recovered/Resolved]
  - Feeling abnormal [Unknown]
  - Dry skin [Not Recovered/Not Resolved]
  - Blood cholesterol increased [Not Recovered/Not Resolved]
  - Humerus fracture [Not Recovered/Not Resolved]
  - Feeding disorder [Not Recovered/Not Resolved]
  - Muscle atrophy [Not Recovered/Not Resolved]
  - Feeling abnormal [Not Recovered/Not Resolved]

NARRATIVE: CASE EVENT DATE: 20230501
